FAERS Safety Report 23150893 (Version 1)
Quarter: 2023Q4

REPORT INFORMATION
  Report Type: Spontaneous
  Country: US (occurrence: US)
  Receive Date: 20231106
  Receipt Date: 20231106
  Transmission Date: 20240110
  Serious: Yes (Death, Hospitalization, Other)
  Sender: FDA-Public Use
  Company Number: US-GILEAD-2023-0650003

PATIENT
  Age: 69 Year
  Sex: Male

DRUGS (2)
  1. YESCARTA [Suspect]
     Active Substance: AXICABTAGENE CILOLEUCEL
     Indication: Diffuse large B-cell lymphoma
     Dosage: UNK
     Route: 042
     Dates: start: 20230505, end: 20230505
  2. EPKINLY [Suspect]
     Active Substance: EPCORITAMAB-BYSP
     Indication: Product used for unknown indication
     Route: 065

REACTIONS (4)
  - Disease progression [Fatal]
  - Neurotoxicity [Unknown]
  - Abdominal pain [Not Recovered/Not Resolved]
  - Cytokine release syndrome [Unknown]

NARRATIVE: CASE EVENT DATE: 20230610
